FAERS Safety Report 11021932 (Version 1)
Quarter: 2015Q2

REPORT INFORMATION
  Report Type: Spontaneous
  Country: US (occurrence: US)
  Receive Date: 20150413
  Receipt Date: 20150413
  Transmission Date: 20150821
  Serious: Yes (Other)
  Sender: FDA-Public Use
  Company Number: US-TEVA-553593USA

PATIENT
  Age: 69 Year
  Sex: Female

DRUGS (2)
  1. TOPOTECAN [Suspect]
     Active Substance: TOPOTECAN\TOPOTECAN HYDROCHLORIDE
     Indication: LUNG ADENOCARCINOMA METASTATIC
     Route: 050
  2. CYTARABINE. [Interacting]
     Active Substance: CYTARABINE
     Indication: LUNG ADENOCARCINOMA METASTATIC
     Dosage: 25 MG EVERY 2 WEEKS
     Route: 050

REACTIONS (2)
  - Cerebral cyst [Recovered/Resolved]
  - Drug interaction [Recovered/Resolved]
